FAERS Safety Report 17614902 (Version 1)
Quarter: 2020Q2

REPORT INFORMATION
  Report Type: Spontaneous
  Country: US (occurrence: US)
  Receive Date: 20200402
  Receipt Date: 20200402
  Transmission Date: 20200713
  Serious: Yes (Other)
  Sender: FDA-Public Use
  Company Number: US-ASTRAZENECA-2020SE42618

PATIENT

DRUGS (2)
  1. NEXIUM [Suspect]
     Active Substance: ESOMEPRAZOLE MAGNESIUM
     Route: 048
     Dates: start: 2005, end: 2018
  2. PROTONIX [Suspect]
     Active Substance: PANTOPRAZOLE SODIUM
     Route: 065
     Dates: start: 2005, end: 2018

REACTIONS (4)
  - Acute kidney injury [Unknown]
  - Renal tubular necrosis [Unknown]
  - Tubulointerstitial nephritis [Unknown]
  - Chronic kidney disease [Unknown]
